FAERS Safety Report 18902567 (Version 1)
Quarter: 2021Q1

REPORT INFORMATION
  Report Type: Spontaneous
  Country: US (occurrence: US)
  Receive Date: 20210217
  Receipt Date: 20210217
  Transmission Date: 20210420
  Serious: No
  Sender: FDA-Public Use
  Company Number: US-CIPLA LTD.-2020US08855

PATIENT

DRUGS (1)
  1. DICLOFENAC [Suspect]
     Active Substance: DICLOFENAC
     Indication: PAIN
     Dosage: UNK, ALL OVER BODY, 3 YEARS AGO
     Route: 061

REACTIONS (3)
  - Anxiety [Unknown]
  - Off label use [Unknown]
  - Product use in unapproved indication [Unknown]
